FAERS Safety Report 8035541-1 (Version None)
Quarter: 2012Q1

REPORT INFORMATION
  Report Type: 
  Country: None (occurrence: None)
  Receive Date: 20120110
  Receipt Date: 20120110
  Transmission Date: 20120608
  Serious: Yes (Hospitalization)
  Sender: FDA-Public Use
  Company Number: None

PATIENT
  Age: 77 Year
  Sex: Female
  Weight: 70.7611 kg

DRUGS (1)
  1. TAMSULOSIN HYDROCHLORIDE [Suspect]
     Indication: HYPERSENSITIVITY
     Dosage: 0.4 MG 1 DAILY MOUTH
     Route: 048
     Dates: start: 20111031, end: 20111127

REACTIONS (2)
  - DRUG PRESCRIBING ERROR [None]
  - WRONG DRUG ADMINISTERED [None]
